FAERS Safety Report 8574933-9 (Version None)
Quarter: 2012Q3

REPORT INFORMATION
  Report Type: 
  Country: None (occurrence: None)
  Receive Date: 20120807
  Receipt Date: 20120726
  Transmission Date: 20120928
  Serious: Yes (Hospitalization)
  Sender: FDA-Public Use
  Company Number: US-BAYER-2012-076175

PATIENT
  Age: 48 Year
  Sex: Female

DRUGS (5)
  1. OXYCODONE HCL [Concomitant]
     Indication: PAIN
     Dosage: 1-2 TABS, Q4HR, AS NEEDED
     Route: 048
     Dates: start: 20060525
  2. YASMIN [Suspect]
     Dosage: 1 TABLET
     Route: 048
  3. CIPROFLOXACIN HCL [Concomitant]
     Dosage: 750 MG, UNK
     Dates: start: 20060501
  4. TRAMADOL HYDROCHLORIDE [Concomitant]
     Dosage: 50 MG, UNK
     Dates: start: 20060501
  5. MACROBID [Concomitant]
     Dosage: 100 MG, BID
     Route: 048

REACTIONS (1)
  - DEEP VEIN THROMBOSIS [None]
